FAERS Safety Report 6265105-1 (Version None)
Quarter: 2009Q3

REPORT INFORMATION
  Report Type: 
  Country: None (occurrence: None)
  Receive Date: 20090709
  Receipt Date: 20090709
  Transmission Date: 20100115
  Serious: Yes (Other)
  Sender: FDA-Public Use
  Company Number: None

PATIENT
  Sex: Female
  Weight: 59.8748 kg

DRUGS (2)
  1. AMBIEN [Suspect]
     Indication: INSOMNIA
     Dates: start: 20090501
  2. ZOLPIDEM [Suspect]
     Dates: start: 20090602

REACTIONS (2)
  - INSOMNIA [None]
  - NIGHTMARE [None]
